APPROVED DRUG PRODUCT: FLUOXETINE HYDROCHLORIDE
Active Ingredient: FLUOXETINE HYDROCHLORIDE
Strength: EQ 10MG BASE
Dosage Form/Route: CAPSULE;ORAL
Application: A075049 | Product #001 | TE Code: AB1
Applicant: APNAR PHARMA LP
Approved: Aug 2, 2001 | RLD: No | RS: No | Type: RX